FAERS Safety Report 9047137 (Version 1)
Quarter: 2013Q1

REPORT INFORMATION
  Report Type: Spontaneous
  Country: US (occurrence: US)
  Receive Date: 20130130
  Receipt Date: 20130130
  Transmission Date: 20140127
  Serious: No
  Sender: FDA-Public Use
  Company Number: US-ABBOTT-12P-163-0976491-00

PATIENT
  Sex: Male
  Weight: 69.46 kg

DRUGS (2)
  1. HUMIRA [Suspect]
     Indication: CROHN^S DISEASE
     Dates: start: 201205
  2. HUMIRA [Suspect]

REACTIONS (3)
  - Furuncle [Recovered/Resolved]
  - Staphylococcal infection [Recovered/Resolved]
  - Recurring skin boils [Unknown]
